FAERS Safety Report 21031273 (Version 4)
Quarter: 2025Q2

REPORT INFORMATION
  Report Type: Report from Study
  Country: GB (occurrence: GB)
  Receive Date: 20220701
  Receipt Date: 20250529
  Transmission Date: 20250716
  Serious: Yes (Other)
  Sender: AMGEN
  Company Number: GB-002147023-NVSC2022GB147848

PATIENT
  Sex: Female

DRUGS (2)
  1. AIMOVIG [Suspect]
     Active Substance: ERENUMAB-AOOE
     Indication: Migraine
     Dosage: 140 MG, Q4W
     Route: 058
  2. DIETHYLSTILBESTROL [Concomitant]
     Active Substance: DIETHYLSTILBESTROL
     Indication: Product used for unknown indication
     Route: 065

REACTIONS (5)
  - Diabetes mellitus [Unknown]
  - Addison^s disease [Unknown]
  - Hypothalamo-pituitary disorder [Unknown]
  - Neoplasm [Unknown]
  - Device leakage [Unknown]

NARRATIVE: CASE EVENT DATE: 20220616
